FAERS Safety Report 22221355 (Version 4)
Quarter: 2024Q3

REPORT INFORMATION
  Report Type: Spontaneous
  Country: US (occurrence: US)
  Receive Date: 20230418
  Receipt Date: 20240720
  Transmission Date: 20241017
  Serious: Yes (Other)
  Sender: TEVA
  Company Number: US-TEVA-2023-US-2875840

PATIENT
  Age: 30 Year
  Sex: Male

DRUGS (38)
  1. FLUOXETINE [Suspect]
     Active Substance: FLUOXETINE HYDROCHLORIDE
     Indication: Migraine
     Dosage: DOSAGE TEXT: 10 MILLIGRAM
     Route: 048
     Dates: start: 201708
  2. FLUOXETINE [Suspect]
     Active Substance: FLUOXETINE HYDROCHLORIDE
     Indication: Migraine
     Route: 065
  3. FLUOXETINE [Suspect]
     Active Substance: FLUOXETINE HYDROCHLORIDE
     Indication: Product used for unknown indication
     Route: 065
  4. SEROQUEL [Concomitant]
     Active Substance: QUETIAPINE FUMARATE
  5. BUPROPION [Concomitant]
     Active Substance: BUPROPION
  6. CYPROHEPTADINE [Concomitant]
     Active Substance: CYPROHEPTADINE
  7. CLONIDINE [Concomitant]
     Active Substance: CLONIDINE
  8. ADDERALL [Concomitant]
     Active Substance: AMPHETAMINE ASPARTATE\AMPHETAMINE SULFATE\DEXTROAMPHETAMINE SACCHARATE\DEXTROAMPHETAMINE SULFATE
  9. VRAYLAR [Concomitant]
     Active Substance: CARIPRAZINE
  10. IMITREX [Concomitant]
     Active Substance: SUMATRIPTAN SUCCINATE
  11. TRAZODONE [Concomitant]
     Active Substance: TRAZODONE HYDROCHLORIDE
  12. SERTRALINE [Concomitant]
     Active Substance: SERTRALINE HYDROCHLORIDE
  13. SERTRALINE [Concomitant]
     Active Substance: SERTRALINE HYDROCHLORIDE
  14. PROMETHAZINE [Concomitant]
     Active Substance: PROMETHAZINE HYDROCHLORIDE
  15. ABILIFY [Concomitant]
     Active Substance: ARIPIPRAZOLE
  16. CITALOPRAM [Concomitant]
     Active Substance: CITALOPRAM\CITALOPRAM HYDROBROMIDE
  17. CITALOPRAM [Concomitant]
     Active Substance: CITALOPRAM\CITALOPRAM HYDROBROMIDE
  18. LAMOTRIGINE [Concomitant]
     Active Substance: LAMOTRIGINE
  19. LAMOTRIGINE [Concomitant]
     Active Substance: LAMOTRIGINE
  20. CLONAZEPAM [Concomitant]
     Active Substance: CLONAZEPAM
  21. ESCITALOPRAM [Concomitant]
     Active Substance: ESCITALOPRAM OXALATE
  22. ESCITALOPRAM [Concomitant]
     Active Substance: ESCITALOPRAM OXALATE
  23. EFFEXOR [Concomitant]
     Active Substance: VENLAFAXINE HYDROCHLORIDE
  24. ATIVAN [Concomitant]
     Active Substance: LORAZEPAM
  25. TRIHEXYPHENIDYL [Concomitant]
     Active Substance: TRIHEXYPHENIDYL
  26. TRIHEXYPHENIDYL [Concomitant]
     Active Substance: TRIHEXYPHENIDYL
  27. MIRTAZAPINE [Concomitant]
     Active Substance: MIRTAZAPINE
  28. ASENAPINE [Concomitant]
     Active Substance: ASENAPINE
  29. BENZTROPINE [Concomitant]
     Active Substance: BENZTROPINE
  30. REXULTI [Concomitant]
     Active Substance: BREXPIPRAZOLE
  31. PAROXETINE [Concomitant]
     Active Substance: PAROXETINE
  32. VILAZODONE [Concomitant]
     Active Substance: VILAZODONE
  33. HYDROXYZINE [Concomitant]
     Active Substance: HYDROXYZINE HYDROCHLORIDE
  34. PROPRANOLOL [Concomitant]
     Active Substance: PROPRANOLOL HYDROCHLORIDE
  35. METRONIDAZOLE [Concomitant]
     Active Substance: METRONIDAZOLE
     Indication: Gastrointestinal infection
  36. METRONIDAZOLE [Concomitant]
     Active Substance: METRONIDAZOLE
     Indication: Gastrointestinal infection
  37. LITHIUM [Concomitant]
     Active Substance: LITHIUM
  38. DIVALPROEX SODIUM [Concomitant]
     Active Substance: DIVALPROEX SODIUM

REACTIONS (40)
  - Cerebral disorder [Unknown]
  - Substance-induced psychotic disorder [Recovering/Resolving]
  - Post-traumatic stress disorder [Unknown]
  - Product use in unapproved indication [Unknown]
  - Feeding disorder [Unknown]
  - Nightmare [Unknown]
  - Mental fatigue [Not Recovered/Not Resolved]
  - Confusional state [Unknown]
  - Disorientation [Unknown]
  - Derealisation [Unknown]
  - Abdominal discomfort [Unknown]
  - Insomnia [Unknown]
  - Weight decreased [Unknown]
  - Burning sensation [Unknown]
  - Anxiety [Unknown]
  - Substance-induced psychotic disorder [Unknown]
  - Schizoaffective disorder [Unknown]
  - Obsessive-compulsive disorder [Unknown]
  - Major depression [Unknown]
  - Insomnia [Unknown]
  - Nervousness [Unknown]
  - Anhedonia [Unknown]
  - Hallucination [Unknown]
  - Irritable bowel syndrome [Unknown]
  - Gastritis [Unknown]
  - Abdominal pain lower [Unknown]
  - Change of bowel habit [Unknown]
  - Abdominal pain upper [Unknown]
  - Nausea [Unknown]
  - Dysphagia [Unknown]
  - Diarrhoea [Unknown]
  - Abdominal distension [Unknown]
  - Rectal haemorrhage [Unknown]
  - Dyspepsia [Unknown]
  - Gastrooesophageal reflux disease [Unknown]
  - Seborrhoeic dermatitis [Unknown]
  - Vomiting [Unknown]
  - Urinary tract infection [Unknown]
  - Nephrolithiasis [Unknown]
  - Alopecia areata [Unknown]

NARRATIVE: CASE EVENT DATE: 20170101
